FAERS Safety Report 22002132 (Version 1)
Quarter: 2023Q1

REPORT INFORMATION
  Report Type: Spontaneous
  Country: US (occurrence: US)
  Receive Date: 20230216
  Receipt Date: 20230216
  Transmission Date: 20230418
  Serious: No
  Sender: FDA-Public Use
  Company Number: US-GSKCCFUS-Case-01623974_AE-91688

PATIENT
  Sex: Female

DRUGS (1)
  1. NUCALA [Suspect]
     Active Substance: MEPOLIZUMAB
     Indication: Product used for unknown indication
     Dosage: UNK

REACTIONS (9)
  - Sneezing [Unknown]
  - Rhinorrhoea [Unknown]
  - Wheezing [Unknown]
  - Nasal congestion [Unknown]
  - Chest discomfort [Unknown]
  - Ageusia [Unknown]
  - Anosmia [Unknown]
  - Sinusitis fungal [Unknown]
  - Drug ineffective [Unknown]
